FAERS Safety Report 7491835-X (Version None)
Quarter: 2011Q2

REPORT INFORMATION
  Report Type: 
  Country: None (occurrence: None)
  Receive Date: 20110519
  Receipt Date: 20110510
  Transmission Date: 20111010
  Serious: Yes (Hospitalization, Other)
  Sender: FDA-Public Use
  Company Number: US-ASTRAZENECA-2011SE09190

PATIENT
  Age: 63 Year
  Sex: Male

DRUGS (3)
  1. SYMBICORT [Suspect]
     Indication: CHRONIC OBSTRUCTIVE PULMONARY DISEASE
     Route: 055
  2. ADVAIR DISKUS 100/50 [Concomitant]
     Dosage: 250/50, Q4-6 HOURS PRN
     Dates: start: 20100101
  3. SOLU-MEDROL [Concomitant]

REACTIONS (13)
  - CHRONIC OBSTRUCTIVE PULMONARY DISEASE [None]
  - GENERALISED OEDEMA [None]
  - PNEUMONIA [None]
  - LEUKOCYTOSIS [None]
  - WEIGHT INCREASED [None]
  - ENTEROCOCCAL INFECTION [None]
  - STAPHYLOCOCCAL INFECTION [None]
  - TREATMENT NONCOMPLIANCE [None]
  - CHEST PAIN [None]
  - URINARY RETENTION [None]
  - OCCULT BLOOD POSITIVE [None]
  - INTESTINAL MUCOSAL HYPERTROPHY [None]
  - ECCHYMOSIS [None]
